FAERS Safety Report 23454035 (Version 1)
Quarter: 2024Q1

REPORT INFORMATION
  Report Type: Spontaneous
  Country: US (occurrence: US)
  Receive Date: 20240130
  Receipt Date: 20240130
  Transmission Date: 20240409
  Serious: Yes (Other)
  Sender: FDA-Public Use
  Company Number: US-STRIDES ARCOLAB LIMITED-2023SP017020

PATIENT

DRUGS (1)
  1. METHOTREXATE [Suspect]
     Active Substance: METHOTREXATE
     Indication: Acute lymphocytic leukaemia
     Dosage: 5000 MILLIGRAM/SQ. METER, AT LEAST ONE DOSE OF HIGH DOSE METHOTREXATE. TEN PERCENT OF THE DOSE WAS A
     Route: 042

REACTIONS (1)
  - Neurotoxicity [Unknown]
